FAERS Safety Report 7129240-8 (Version None)
Quarter: 2010Q4

REPORT INFORMATION
  Report Type: 
  Country: None (occurrence: None)
  Receive Date: 20101112
  Receipt Date: 20101102
  Transmission Date: 20110411
  Serious: Yes (Congenital Anomaly)
  Sender: FDA-Public Use
  Company Number: DSA_44277_2010

PATIENT
  Sex: Male

DRUGS (3)
  1. WELLBUTRIN [Suspect]
     Indication: PRODUCT USED FOR UNKNOWN INDICATION
     Dosage: (300 MG QD TRANSPLACENTAL)
     Route: 064
  2. LAMICTAL [Suspect]
     Indication: BIPOLAR DISORDER
     Dosage: (DF TRANSPLACENTAL)
     Route: 064
  3. LEXAPRO [Suspect]
     Indication: PRODUCT USED FOR UNKNOWN INDICATION
     Dosage: (20 MG QD TRANSPLACENTAL)
     Route: 064

REACTIONS (3)
  - CONGENITAL ANOMALY [None]
  - HEARING IMPAIRED [None]
  - MATERNAL DRUGS AFFECTING FOETUS [None]
